FAERS Safety Report 6312429-5 (Version None)
Quarter: 2009Q3

REPORT INFORMATION
  Report Type: 
  Country: None (occurrence: None)
  Receive Date: 20090813
  Receipt Date: 20090729
  Transmission Date: 20100115
  Serious: Yes (Hospitalization)
  Sender: FDA-Public Use
  Company Number: 8050027

PATIENT
  Age: 46 Year
  Sex: Female

DRUGS (14)
  1. KEPPRA [Suspect]
     Indication: EPILEPSY
     Dosage: 1 G 2/D PO
     Route: 048
     Dates: end: 20090420
  2. NATRIUMVALPROAT [Suspect]
     Indication: STATUS EPILEPTICUS
     Dosage: 2 ML IV
     Route: 042
     Dates: start: 20090417, end: 20090420
  3. ALENDRONSAURE [Concomitant]
  4. CALCIVIT D [Concomitant]
  5. CEFTRIAXONE /00672202/ [Concomitant]
  6. CLINDAMYCIN RATIOPHAM [Concomitant]
  7. CLONT /00012501/ [Concomitant]
  8. GABAPENTIN [Concomitant]
  9. HYDROCHLOROTHIAZIDE [Concomitant]
  10. HEPARIN /00027704/ [Concomitant]
  11. MIDAZOLAM HCL [Concomitant]
  12. RAMIPRIL [Concomitant]
  13. UNACID /00903602/ [Concomitant]
  14. ZENTROPHIL /00017401/ [Concomitant]

REACTIONS (19)
  - ACQUIRED DIAPHRAGMATIC EVENTRATION [None]
  - ACUTE HEPATIC FAILURE [None]
  - AORTIC VALVE SCLEROSIS [None]
  - ATELECTASIS [None]
  - CARDIOMEGALY [None]
  - CSF PROTEIN INCREASED [None]
  - DISORIENTATION [None]
  - DRUG LEVEL DECREASED [None]
  - DYSPHAGIA [None]
  - MITRAL VALVE INCOMPETENCE [None]
  - PLEURAL EFFUSION [None]
  - PNEUMONIA ASPIRATION [None]
  - PULMONARY CONGESTION [None]
  - PULMONARY VALVE INCOMPETENCE [None]
  - PULMONARY VALVE SCLEROSIS [None]
  - SOMNOLENCE [None]
  - STATUS EPILEPTICUS [None]
  - TRICUSPID VALVE INCOMPETENCE [None]
  - TRICUSPID VALVE SCLEROSIS [None]
